FAERS Safety Report 8522544-3 (Version None)
Quarter: 2012Q3

REPORT INFORMATION
  Report Type: 
  Country: None (occurrence: None)
  Receive Date: 20120719
  Receipt Date: 20120710
  Transmission Date: 20120928
  Serious: No
  Sender: FDA-Public Use
  Company Number: US-PFIZER INC-2012165577

PATIENT
  Sex: Female

DRUGS (1)
  1. DEPO-PROVERA [Suspect]
     Indication: CONTRACEPTION
     Dosage: 150 MG/ML, EVERY 3 MONTHS
     Route: 030

REACTIONS (5)
  - HEADACHE [None]
  - SYNCOPE [None]
  - NAUSEA [None]
  - MALAISE [None]
  - VOMITING [None]
